FAERS Safety Report 6547178-1 (Version None)
Quarter: 2010Q1

REPORT INFORMATION
  Report Type: 
  Country: None (occurrence: None)
  Receive Date: 20100122
  Receipt Date: 20100114
  Transmission Date: 20100710
  Serious: Yes (Hospitalization)
  Sender: FDA-Public Use
  Company Number: GXKR2010FR00914

PATIENT
  Age: 73 Year
  Sex: Female

DRUGS (2)
  1. BROMAZEPAM (NGX) [Suspect]
     Dosage: UP TO 180 MG, ONCE/SINGLE
     Route: 048
  2. ZOLPIDEM (NGX) [Suspect]
     Route: 065

REACTIONS (3)
  - COMA [None]
  - ENDOTRACHEAL INTUBATION [None]
  - INTENTIONAL OVERDOSE [None]
